FAERS Safety Report 7966448-3 (Version None)
Quarter: 2011Q4

REPORT INFORMATION
  Report Type: 
  Country: None (occurrence: None)
  Receive Date: 20111208
  Receipt Date: 20111004
  Transmission Date: 20120403
  Serious: Yes (Other)
  Sender: FDA-Public Use
  Company Number: US-ROCHE-1019937

PATIENT
  Sex: Male

DRUGS (2)
  1. RANIBIZUMAB [Suspect]
     Dosage: SINCE 2008 OR 2009 FOR RIGHT EYE.
     Route: 050
     Dates: start: 20080101
  2. RANIBIZUMAB [Suspect]
     Indication: AGE-RELATED MACULAR DEGENERATION
     Dosage: FOR LEFT EYE.
     Route: 050
     Dates: start: 20070101

REACTIONS (2)
  - RETINAL DETACHMENT [None]
  - OCULAR HYPERAEMIA [None]
